FAERS Safety Report 24231693 (Version 2)
Quarter: 2024Q4

REPORT INFORMATION
  Report Type: Spontaneous
  Country: FR (occurrence: FR)
  Receive Date: 20240821
  Receipt Date: 20241014
  Transmission Date: 20250114
  Serious: Yes (Hospitalization, Other)
  Sender: AUROBINDO
  Company Number: FR-BRISTOL-MYERS SQUIBB COMPANY-2024-120898

PATIENT
  Age: 62 Year
  Sex: Female

DRUGS (5)
  1. ATAZANAVIR [Suspect]
     Active Substance: ATAZANAVIR
     Indication: HIV infection
     Dosage: UNK
     Route: 065
     Dates: start: 200508, end: 201810
  2. VITAMIN D [Concomitant]
     Active Substance: VITAMIN D NOS
     Indication: HIV infection
     Dosage: UNK
     Route: 065
     Dates: start: 200508, end: 201810
  3. VITAMIN D [Concomitant]
     Active Substance: VITAMIN D NOS
     Indication: Osteopenia
  4. EMTRICITABINE [Concomitant]
     Active Substance: EMTRICITABINE
     Indication: HIV infection
     Dosage: UNK
     Route: 065
     Dates: start: 200508, end: 201810
  5. RITONAVIR [Concomitant]
     Active Substance: RITONAVIR
     Indication: HIV infection
     Dosage: UNK
     Route: 065
     Dates: start: 200508, end: 201810

REACTIONS (2)
  - Nephrolithiasis [Not Recovered/Not Resolved]
  - Lithiasis [Not Recovered/Not Resolved]
